FAERS Safety Report 8761792 (Version 1)
Quarter: 2012Q4

REPORT INFORMATION
  Report Type: Spontaneous
  Country: US (occurrence: None)
  Receive Date: 20120830
  Receipt Date: 20120830
  Transmission Date: 20130627
  Serious: Yes (Hospitalization)
  Sender: FDA-Public Use
  Company Number: None

PATIENT
  Age: 82 Year
  Sex: Female
  Weight: 65.32 kg

DRUGS (9)
  1. ERLOTINIB [Suspect]
     Indication: NON-SMALL CELL LUNG CANCER
     Route: 048
     Dates: start: 20110714
  2. ASPIRIN 81MG [Concomitant]
  3. CALCIUM CARBONATE [Concomitant]
  4. CLEOCIN T [Suspect]
  5. DOCUSATE SODIUM [Concomitant]
  6. METOPROLOL TARTRATE [Concomitant]
  7. MULTIVITAMINS [Concomitant]
  8. OMEPRAZOLE [Concomitant]
  9. SIMVASTATIN [Concomitant]

REACTIONS (2)
  - Muscle haemorrhage [None]
  - Compartment syndrome [None]
